FAERS Safety Report 21463306 (Version 12)
Quarter: 2025Q2

REPORT INFORMATION
  Report Type: Report from Study
  Country: US (occurrence: US)
  Receive Date: 20221017
  Receipt Date: 20250606
  Transmission Date: 20250716
  Serious: Yes (Other)
  Sender: TAKEDA
  Company Number: US-TAKEDA-2021TUS071826

PATIENT
  Age: 53 Year
  Sex: Female

DRUGS (9)
  1. ECALLANTIDE [Suspect]
     Active Substance: ECALLANTIDE
     Indication: Immune system disorder
  2. ECALLANTIDE [Suspect]
     Active Substance: ECALLANTIDE
  3. ECALLANTIDE [Suspect]
     Active Substance: ECALLANTIDE
  4. ECALLANTIDE [Suspect]
     Active Substance: ECALLANTIDE
  5. ECALLANTIDE [Suspect]
     Active Substance: ECALLANTIDE
  6. ECALLANTIDE [Suspect]
     Active Substance: ECALLANTIDE
  7. ECALLANTIDE [Suspect]
     Active Substance: ECALLANTIDE
  8. RUCONEST [Concomitant]
     Active Substance: CONESTAT ALFA
  9. ICATIBANT ACETATE [Concomitant]
     Active Substance: ICATIBANT ACETATE

REACTIONS (5)
  - Malignant melanoma [Unknown]
  - Infection [Unknown]
  - Weight increased [Unknown]
  - Weight decreased [Unknown]
  - Hereditary angioedema [Recovered/Resolved]

NARRATIVE: CASE EVENT DATE: 20211106
